FAERS Safety Report 5375804-1 (Version None)
Quarter: 2007Q3

REPORT INFORMATION
  Report Type: 
  Country: None (occurrence: None)
  Receive Date: 20070701
  Receipt Date: 20070627
  Transmission Date: 20080115
  Serious: Yes (Hospitalization)
  Sender: FDA-Public Use
  Company Number: US-RB-007077-07

PATIENT
  Sex: Male

DRUGS (2)
  1. SUBOXONE [Suspect]
     Indication: PAIN
     Route: 060
     Dates: start: 20070627
  2. SUBOXONE [Suspect]
     Dosage: TOOK AN UNKNOWN AMOUNT OF 2MG TABLETS.
     Route: 060
     Dates: start: 20070627

REACTIONS (4)
  - AGITATION [None]
  - DELIRIUM [None]
  - HYPERTENSION [None]
  - OVERDOSE [None]
